FAERS Safety Report 5342183-5 (Version None)
Quarter: 2007Q2

REPORT INFORMATION
  Report Type: 
  Country: None (occurrence: None)
  Receive Date: 20070601
  Receipt Date: 20070529
  Transmission Date: 20071010
  Serious: Yes (Congenital Anomaly)
  Sender: FDA-Public Use
  Company Number: B0472709A

PATIENT
  Age: 1 Day

DRUGS (2)
  1. FLUTIDE DISKUS [Suspect]
     Indication: ASTHMA
     Dosage: 200U TWICE PER DAY
  2. SEREVENT [Suspect]
     Indication: ASTHMA
     Dosage: 50U TWICE PER DAY

REACTIONS (2)
  - DRUG EXPOSURE DURING PREGNANCY [None]
  - POLYDACTYLY [None]
